FAERS Safety Report 7222949-7 (Version None)
Quarter: 2011Q1

REPORT INFORMATION
  Report Type: 
  Country: None (occurrence: None)
  Receive Date: 20110106
  Receipt Date: 20110106
  Transmission Date: 20110831
  Serious: Yes (Hospitalization)
  Sender: FDA-Public Use
  Company Number: None

PATIENT
  Age: 79 Year
  Sex: Female
  Weight: 79.5 kg

DRUGS (10)
  1. HYDROCHLOROTHIAZIDE [Concomitant]
  2. ALPRAZOLAM [Concomitant]
  3. LIPITOR [Concomitant]
  4. UROXATRAL [Concomitant]
  5. ZETIA [Concomitant]
  6. COUMADIN [Suspect]
     Indication: ATRIAL FIBRILLATION
     Dosage: 5 MG M T TH F S S PO
     Route: 048
  7. NAC DIAGNOSTIC REAGENT [Concomitant]
  8. ZOLOFT [Concomitant]
  9. COUMADIN [Suspect]
     Indication: ATRIAL FIBRILLATION
     Dosage: 7.5 W PO
     Route: 048
  10. POTASSIUM CHLORIDE [Concomitant]

REACTIONS (2)
  - EPISTAXIS [None]
  - COAGULOPATHY [None]
